FAERS Safety Report 13388594 (Version 3)
Quarter: 2018Q1

REPORT INFORMATION
  Report Type: Spontaneous
  Country: US (occurrence: US)
  Receive Date: 20170330
  Receipt Date: 20180228
  Transmission Date: 20180508
  Serious: Yes (Death, Hospitalization, Other)
  Sender: FDA-Public Use
  Company Number: US-BAXALTA-2017BLT002359

PATIENT
  Age: 7 Year
  Sex: Male
  Weight: 28.4 kg

DRUGS (4)
  1. FEIBA NF [Suspect]
     Active Substance: ANTI-INHIBITOR COAGULANT COMPLEX
     Dosage: 85 U/KG, EVERY OTHER DAY
     Route: 042
     Dates: start: 20170319
  2. XYNTHA [Suspect]
     Active Substance: ANTIHEMOPHILIC FACTOR, HUMAN RECOMBINANT RESIDUES 743-1636 DELETED
     Dosage: 175 U/KG, 1 X A DAY
     Route: 042
     Dates: start: 20170319
  3. FEIBA NF [Suspect]
     Active Substance: ANTI-INHIBITOR COAGULANT COMPLEX
     Indication: FACTOR VIII INHIBITION
     Dosage: 85 U/KG, EVERY OTHER DAY
     Route: 042
     Dates: start: 20170318
  4. XYNTHA [Suspect]
     Active Substance: ANTIHEMOPHILIC FACTOR, HUMAN RECOMBINANT RESIDUES 743-1636 DELETED
     Indication: FACTOR VIII DEFICIENCY
     Dosage: 175 U/KG, 1 X A DAY
     Route: 042
     Dates: start: 20170318

REACTIONS (6)
  - Brain injury [Fatal]
  - Contusion [Not Recovered/Not Resolved]
  - Infusion related reaction [Recovered/Resolved]
  - Cardio-respiratory arrest [Fatal]
  - Pulmonary embolism [Fatal]
  - Loss of consciousness [Not Recovered/Not Resolved]

NARRATIVE: CASE EVENT DATE: 20170319
